FAERS Safety Report 6774291-6 (Version None)
Quarter: 2010Q2

REPORT INFORMATION
  Report Type: 
  Country: None (occurrence: None)
  Receive Date: 20100617
  Receipt Date: 20100607
  Transmission Date: 20101027
  Serious: Yes (Hospitalization)
  Sender: FDA-Public Use
  Company Number: DE-PFIZER INC-2010070662

PATIENT
  Age: 75 Year
  Sex: Female
  Weight: 168 kg

DRUGS (2)
  1. SUNITINIB MALATE [Suspect]
     Indication: RENAL CELL CARCINOMA
     Dosage: 50 MG, 1X/DAY
     Route: 048
     Dates: start: 20090914, end: 20091002
  2. TAMOXIFEN [Concomitant]

REACTIONS (1)
  - OESOPHAGEAL CANDIDIASIS [None]
